FAERS Safety Report 6855695-X (Version None)
Quarter: 2010Q3

REPORT INFORMATION
  Report Type: 
  Country: None (occurrence: None)
  Receive Date: 20100719
  Receipt Date: 20090817
  Transmission Date: 20110219
  Serious: No
  Sender: FDA-Public Use
  Company Number: US-KINGPHARMUSA00001-K200901016

PATIENT
  Sex: Female

DRUGS (1)
  1. LEVOXYL [Suspect]
     Indication: HYPOTHYROIDISM
     Dosage: 150 MCG, QD
     Route: 048

REACTIONS (20)
  - ANXIETY [None]
  - CHEST DISCOMFORT [None]
  - DRUG INEFFECTIVE [None]
  - DRY MOUTH [None]
  - DYSPHONIA [None]
  - DYSPNOEA [None]
  - EYE SWELLING [None]
  - FATIGUE [None]
  - FEELING COLD [None]
  - HYPERSOMNIA [None]
  - HYPOTHYROIDISM [None]
  - JOINT SWELLING [None]
  - MALAISE [None]
  - MEMORY IMPAIRMENT [None]
  - MUSCLE SPASMS [None]
  - MUSCULAR WEAKNESS [None]
  - OEDEMA PERIPHERAL [None]
  - SENSATION OF FOREIGN BODY [None]
  - SWELLING FACE [None]
  - WEIGHT INCREASED [None]
